FAERS Safety Report 11259604 (Version 3)
Quarter: 2015Q4

REPORT INFORMATION
  Report Type: Report from Study
  Country: US (occurrence: US)
  Receive Date: 20150710
  Receipt Date: 20151117
  Transmission Date: 20160304
  Serious: Yes (Hospitalization)
  Sender: FDA-Public Use
  Company Number: PHEH2015US008693

PATIENT
  Age: 52 Year
  Sex: Female

DRUGS (2)
  1. GILENYA [Suspect]
     Active Substance: FINGOLIMOD HYDROCHLORIDE
     Indication: RELAPSING-REMITTING MULTIPLE SCLEROSIS
     Dosage: 0.5 MG, QD
     Route: 048
     Dates: start: 20150427
  2. GILENYA [Suspect]
     Active Substance: FINGOLIMOD HYDROCHLORIDE
     Dosage: 0.5 MG, QD
     Route: 048

REACTIONS (16)
  - Central nervous system lesion [Unknown]
  - Multiple sclerosis relapse [Recovering/Resolving]
  - Asthenia [Unknown]
  - Movement disorder [Unknown]
  - Insomnia [Not Recovered/Not Resolved]
  - Fall [Unknown]
  - Hypoaesthesia [Unknown]
  - Diarrhoea [Unknown]
  - Balance disorder [Unknown]
  - Contusion [Unknown]
  - Exercise tolerance decreased [Unknown]
  - Headache [Not Recovered/Not Resolved]
  - Extra dose administered [Unknown]
  - Mental impairment [Unknown]
  - Stress [Unknown]
  - Gait disturbance [Unknown]

NARRATIVE: CASE EVENT DATE: 20150429
